FAERS Safety Report 6408500-X (Version None)
Quarter: 2009Q4

REPORT INFORMATION
  Report Type: 
  Country: None (occurrence: None)
  Receive Date: 20091021
  Receipt Date: 20091009
  Transmission Date: 20100525
  Serious: Yes (Life-Threatening, Disabling, Congenital Anomaly)
  Sender: FDA-Public Use
  Company Number: DK-ROCHE-660337

PATIENT
  Sex: Male
  Weight: 3 kg

DRUGS (3)
  1. TAMIFLU [Suspect]
     Dosage: PATIENT'S MOTHER RECEIVED THE DRUG
     Dates: start: 20090903, end: 20090904
  2. ZOLOFT [Concomitant]
     Dosage: DOSE:100 MG QD, UNTIL CONCEPTION AND 2 WEEKS AFTER THAT, DRUG WITHDRAWN.
  3. PINEX [Concomitant]
     Dosage: DOSE FREQUENCY: TREATMENT DURING 3RD TRIMESTER

REACTIONS (2)
  - CEREBRAL HAEMORRHAGE [None]
  - CEREBRAL INFARCTION [None]
